FAERS Safety Report 8890512 (Version 2)
Quarter: 2012Q4

REPORT INFORMATION
  Report Type: 
  Country: MG (occurrence: MG)
  Receive Date: 20121107
  Receipt Date: 20121120
  Transmission Date: 20130627
  Serious: Yes (Death, Hospitalization, Other)
  Sender: FDA-Public Use
  Company Number: PHHY2012MG047413

PATIENT
  Age: 68 Year
  Sex: Female

DRUGS (2)
  1. GLIVEC [Suspect]
     Indication: GASTROINTESTINAL STROMAL TUMOUR
     Dosage: 400 mg, UNK
     Dates: start: 20090716, end: 20120220
  2. GLIVEC [Suspect]
     Dosage: 600 mg, UNK
     Dates: start: 201208

REACTIONS (12)
  - Neoplasm progression [Fatal]
  - Malignant neoplasm progression [Fatal]
  - Abdominal pain upper [Recovered/Resolved]
  - Lung infection [Recovered/Resolved]
  - Pyrexia [Recovered/Resolved]
  - Inflammation [Recovered/Resolved]
  - Metastases to liver [Unknown]
  - Lymphadenopathy [Unknown]
  - General physical health deterioration [Unknown]
  - Asthenia [Unknown]
  - Cough [Unknown]
  - No therapeutic response [Unknown]
